FAERS Safety Report 4394333-5 (Version None)
Quarter: 2004Q3

REPORT INFORMATION
  Report Type: 
  Country: None (occurrence: None)
  Receive Date: 20040706
  Receipt Date: 20040624
  Transmission Date: 20050211
  Serious: Yes (Death, Other)
  Sender: FDA-Public Use
  Company Number: 2003111889

PATIENT
  Age: 83 Year
  Sex: Female
  Weight: 60 kg

DRUGS (8)
  1. GEODON [Suspect]
     Indication: AGITATION
     Dosage: (10 MG, 12 IN 1 D), INTRAMUSCULAR
     Route: 030
     Dates: start: 20030212, end: 20030212
  2. LEVOFLOXACIN [Suspect]
     Indication: RESPIRATORY TRACT INFECTION
     Dosage: 250 MG (1 IN 1 D), INTRAVENOUS
     Route: 042
     Dates: start: 20030210, end: 20030211
  3. LISINOPRIL [Concomitant]
  4. GLICLAZIDE (GLICLAZIDE) [Concomitant]
  5. ALENDRONATE SODIUM [Concomitant]
  6. PREDNISONE TAB [Concomitant]
  7. BUDESONIDE (BUDESONIDE) [Concomitant]
  8. COBIVENT (IPRATROPIUM BROMIDE, SALBUTAMOL SULFATE) [Concomitant]

REACTIONS (11)
  - BLOOD CREATININE INCREASED [None]
  - CARDIAC ARREST [None]
  - ELECTROCARDIOGRAM ABNORMAL [None]
  - ELECTROCARDIOGRAM QRS COMPLEX PROLONGED [None]
  - ELECTROCARDIOGRAM QT CORRECTED INTERVAL PROLONGED [None]
  - ELECTROCARDIOGRAM QT PROLONGED [None]
  - HYPERKALAEMIA [None]
  - RESPIRATORY FAILURE [None]
  - SINUS BRADYCARDIA [None]
  - VENTRICULAR EXTRASYSTOLES [None]
  - VENTRICULAR TACHYCARDIA [None]
